FAERS Safety Report 14676978 (Version 2)
Quarter: 2018Q2

REPORT INFORMATION
  Report Type: Spontaneous
  Country: US (occurrence: US)
  Receive Date: 20180324
  Receipt Date: 20180419
  Transmission Date: 20180711
  Serious: No
  Sender: FDA-Public Use
  Company Number: US-JNJFOC-20180307844

PATIENT
  Age: 72 Year
  Sex: Female
  Weight: 65.77 kg

DRUGS (2)
  1. IMODIUM A-D [Suspect]
     Active Substance: LOPERAMIDE HYDROCHLORIDE
     Route: 048
  2. IMODIUM A-D [Suspect]
     Active Substance: LOPERAMIDE HYDROCHLORIDE
     Indication: DIARRHOEA
     Route: 048
     Dates: start: 20180304

REACTIONS (2)
  - Drug administration error [Unknown]
  - Expired product administered [Unknown]
